FAERS Safety Report 4321152-8 (Version None)
Quarter: 2004Q1

REPORT INFORMATION
  Report Type: 
  Country: None (occurrence: None)
  Receive Date: 20040315
  Receipt Date: 20031020
  Transmission Date: 20041129
  Serious: Yes (Other)
  Sender: FDA-Public Use
  Company Number: PHEH2003US09436

PATIENT
  Age: 56 Year
  Sex: Female

DRUGS (2)
  1. TRILEPTAL [Suspect]
     Dosage: 450 MG, BID, ORAL; ORAL
     Route: 048
     Dates: start: 20010924, end: 20020501
  2. TRILEPTAL [Suspect]
     Dosage: 450 MG, BID, ORAL; ORAL
     Route: 048
     Dates: start: 20020501, end: 20030801

REACTIONS (2)
  - BLOOD SODIUM DECREASED [None]
  - HEADACHE [None]
